FAERS Safety Report 6603815-4 (Version None)
Quarter: 2010Q1

REPORT INFORMATION
  Report Type: 
  Country: None (occurrence: None)
  Receive Date: 20100226
  Receipt Date: 20090210
  Transmission Date: 20100710
  Serious: No
  Sender: FDA-Public Use
  Company Number: A0767959A

PATIENT
  Age: 48 Year
  Sex: Female

DRUGS (5)
  1. LAMICTAL CD [Suspect]
     Indication: DEPRESSION
     Dosage: 100MG TWICE PER DAY
     Route: 048
     Dates: start: 20081101
  2. SEROQUEL [Concomitant]
  3. MULTI-VITAMIN [Concomitant]
  4. FISH OIL [Concomitant]
  5. CALCIUM [Concomitant]

REACTIONS (2)
  - ARTHRALGIA [None]
  - LOCAL SWELLING [None]
